FAERS Safety Report 5941196-X (Version None)
Quarter: 2008Q4

REPORT INFORMATION
  Report Type: 
  Country: None (occurrence: None)
  Receive Date: 20081104
  Receipt Date: 20081031
  Transmission Date: 20090506
  Serious: Yes (Hospitalization)
  Sender: FDA-Public Use
  Company Number: US-GILEAD-2008-0018203

PATIENT
  Sex: Female

DRUGS (7)
  1. LETAIRIS [Suspect]
     Indication: PULMONARY HYPERTENSION
     Route: 048
     Dates: start: 20070801
  2. ENALAPRIL MALEATE [Concomitant]
     Indication: HYPERTENSION
     Dates: start: 20070101
  3. NEXIUM [Concomitant]
     Indication: GASTROOESOPHAGEAL REFLUX DISEASE
     Dates: start: 20070101
  4. PREDNISONE TAB [Concomitant]
     Indication: SCLERODERMA
     Dates: start: 20070101
  5. GLIPIZIDE [Concomitant]
     Indication: DIABETES MELLITUS
     Dates: start: 20070101
  6. HYDROCODONE BITARTRATE + ACETAMINOPHEN [Concomitant]
     Indication: ARTHRALGIA
     Dates: start: 20070601
  7. NORVASC [Concomitant]
     Indication: HYPERTENSION
     Dates: start: 20070101

REACTIONS (3)
  - DIZZINESS [None]
  - DYSPNOEA [None]
  - PYREXIA [None]
